FAERS Safety Report 24656093 (Version 1)
Quarter: 2024Q4

REPORT INFORMATION
  Report Type: Spontaneous
  Country: US (occurrence: US)
  Receive Date: 20241124
  Receipt Date: 20241124
  Transmission Date: 20250115
  Serious: No
  Sender: SANOFI AVENTIS
  Company Number: US-SA-2024SA321934

PATIENT
  Sex: Female
  Weight: 64.09 kg

DRUGS (14)
  1. DUPIXENT [Suspect]
     Active Substance: DUPILUMAB
     Indication: General physical health deterioration
     Dosage: 300 MG, QOW
     Route: 058
  2. DUPIXENT [Suspect]
     Active Substance: DUPILUMAB
     Indication: Illness
  3. RYALTRIS [Concomitant]
     Active Substance: MOMETASONE FUROATE MONOHYDRATE\OLOPATADINE HYDROCHLORIDE
  4. MELOXICAM [Concomitant]
     Active Substance: MELOXICAM
  5. ATIVAN [Concomitant]
     Active Substance: LORAZEPAM
  6. QSYMIA [Concomitant]
     Active Substance: PHENTERMINE HYDROCHLORIDE\TOPIRAMATE
  7. AIMOVIG [Concomitant]
     Active Substance: ERENUMAB-AOOE
  8. ALPRAZOLAM [Concomitant]
     Active Substance: ALPRAZOLAM
  9. TOPAMAX [Concomitant]
     Active Substance: TOPIRAMATE
  10. BOTOX [Concomitant]
     Active Substance: ONABOTULINUMTOXINA
  11. ONDANSETRON HYDROCHLORIDE [Concomitant]
     Active Substance: ONDANSETRON HYDROCHLORIDE
  12. ARMOUR THYROID [Concomitant]
     Active Substance: THYROID, PORCINE
  13. PROZAC [Concomitant]
     Active Substance: FLUOXETINE HYDROCHLORIDE
  14. VYEPTI [Concomitant]
     Active Substance: EPTINEZUMAB-JJMR

REACTIONS (3)
  - Migraine [Unknown]
  - Headache [Unknown]
  - Ill-defined disorder [Unknown]
